FAERS Safety Report 6016159-9 (Version None)
Quarter: 2008Q4

REPORT INFORMATION
  Report Type: 
  Country: None (occurrence: None)
  Receive Date: 20081222
  Receipt Date: 20081215
  Transmission Date: 20090506
  Serious: Yes (Hospitalization, Other)
  Sender: FDA-Public Use
  Company Number: US-ELI_LILLY_AND_COMPANY-US200812003711

PATIENT
  Age: 55 Year
  Sex: Male
  Weight: 99.773 kg

DRUGS (3)
  1. HUMALOG [Suspect]
     Dates: start: 19940101
  2. LANTUS [Concomitant]
  3. FLORINEF [Concomitant]
     Indication: BLOOD PRESSURE

REACTIONS (12)
  - BLINDNESS UNILATERAL [None]
  - CARDIAC DISORDER [None]
  - CARDIAC FAILURE CONGESTIVE [None]
  - CAROTID ARTERY OCCLUSION [None]
  - CORONARY ARTERY BYPASS [None]
  - DYSPNOEA [None]
  - FLUID RETENTION [None]
  - LOSS OF CONSCIOUSNESS [None]
  - ORTHOSTATIC HYPOTENSION [None]
  - RENAL DISORDER [None]
  - RENAL FAILURE [None]
  - WEIGHT INCREASED [None]
